FAERS Safety Report 12538285 (Version 1)
Quarter: 2016Q3

REPORT INFORMATION
  Report Type: Spontaneous
  Country: IT (occurrence: IT)
  Receive Date: 20160707
  Receipt Date: 20160707
  Transmission Date: 20161109
  Serious: Yes (Hospitalization)
  Sender: FDA-Public Use
  Company Number: IT-ALLERGAN-1662158US

PATIENT
  Age: 60 Year
  Sex: Female

DRUGS (2)
  1. MESALAZINE UNK [Suspect]
     Active Substance: MESALAMINE
     Indication: CROHN^S DISEASE
     Dosage: 1,600-2,400 MG/QD
     Route: 048
     Dates: start: 1986, end: 1994
  2. MESALAZINE UNK [Suspect]
     Active Substance: MESALAMINE
     Dosage: 1,600-2,400 MG/QD
     Route: 048
     Dates: start: 1994

REACTIONS (3)
  - Interstitial lung disease [Recovered/Resolved]
  - Computerised tomogram thorax abnormal [Recovered/Resolved]
  - Bronchiectasis [Recovered/Resolved]

NARRATIVE: CASE EVENT DATE: 199401
